FAERS Safety Report 6713798-4 (Version None)
Quarter: 2010Q2

REPORT INFORMATION
  Report Type: 
  Country: None (occurrence: None)
  Receive Date: 20100506
  Receipt Date: 20100504
  Transmission Date: 20101027
  Serious: Yes (Hospitalization)
  Sender: FDA-Public Use
  Company Number: GXKR2009DE03162

PATIENT
  Age: 20 Year
  Sex: Female
  Weight: 55 kg

DRUGS (6)
  1. GABAPENTIN [Suspect]
     Indication: PAIN
     Dosage: 300 MG, QID
     Route: 048
     Dates: start: 20081205, end: 20081216
  2. GABAPENTIN [Suspect]
     Dosage: 300 MG, TID
     Route: 048
  3. GABAPENTIN [Suspect]
     Dosage: 100 MG, TID
     Route: 048
     Dates: start: 20081102
  4. GABAPENTIN [Suspect]
     Dosage: 300 MG, TID
     Dates: start: 20081217
  5. CEFADROXIL [Concomitant]
     Indication: LYME DISEASE
     Dosage: UNK
     Route: 048
     Dates: start: 20081128
  6. PERENTEROL                              /GFR/ [Concomitant]
     Dosage: UNK
     Route: 048
     Dates: start: 20081116

REACTIONS (1)
  - NARCOLEPSY [None]
